FAERS Safety Report 15385869 (Version 1)
Quarter: 2018Q3

REPORT INFORMATION
  Report Type: Spontaneous
  Country: US (occurrence: US)
  Receive Date: 20180914
  Receipt Date: 20180914
  Transmission Date: 20181010
  Serious: No
  Sender: FDA-Public Use
  Company Number: US-PERRIGO-18US007363

PATIENT
  Sex: Female
  Weight: 93.42 kg

DRUGS (2)
  1. CLOBETASOL PROPIONATE. [Suspect]
     Active Substance: CLOBETASOL PROPIONATE
     Indication: ECZEMA
     Dosage: MORE THAN ONE CAPFUL, 1 TO 2 TIMES DAILY, 5 DAYS ON THEN 2 DAYS OFF
     Route: 061
     Dates: start: 2018, end: 201807
  2. CLOBETASOL PROPIONATE. [Suspect]
     Active Substance: CLOBETASOL PROPIONATE
     Dosage: MORE THAN ONE CAPFUL, 1 TO 2 TIMES DAILY, 5 DAYS ON THEN 2 DAYS OFF
     Route: 061
     Dates: start: 201807, end: 20180716

REACTIONS (3)
  - Wrong technique in product usage process [Recovered/Resolved]
  - Inappropriate schedule of drug administration [Recovered/Resolved]
  - Incorrect dose administered [Recovered/Resolved]

NARRATIVE: CASE EVENT DATE: 2018
